FAERS Safety Report 6859578-0 (Version None)
Quarter: 2010Q3

REPORT INFORMATION
  Report Type: 
  Country: None (occurrence: None)
  Receive Date: 20100719
  Receipt Date: 20080303
  Transmission Date: 20110219
  Serious: No
  Sender: FDA-Public Use
  Company Number: US-PFIZER INC-2008019905

PATIENT
  Sex: Female
  Weight: 87.1 kg

DRUGS (11)
  1. CHANTIX [Suspect]
     Indication: SMOKING CESSATION THERAPY
     Dates: start: 20080213
  2. MOBIC [Concomitant]
  3. ADVAIR DISKUS 100/50 [Concomitant]
  4. ALBUTEROL [Concomitant]
  5. LOPRESSOR [Concomitant]
  6. AVANDAMET [Concomitant]
  7. METFORMIN HCL [Concomitant]
  8. AMARYL [Concomitant]
  9. PREVACID [Concomitant]
  10. LIPITOR [Concomitant]
  11. HYDROCODONE [Concomitant]

REACTIONS (1)
  - ABNORMAL DREAMS [None]
